FAERS Safety Report 10456810 (Version 2)
Quarter: 2014Q4

REPORT INFORMATION
  Report Type: Spontaneous
  Country: JP (occurrence: JP)
  Receive Date: 20140916
  Receipt Date: 20141013
  Transmission Date: 20150528
  Serious: Yes (Life-Threatening)
  Sender: FDA-Public Use
  Company Number: JP-GE HEALTHCARE MEDICAL DIAGNOSTICS-OMPQ-PR-1409S-1137

PATIENT
  Age: 67 Year
  Sex: Female
  Weight: 60 kg

DRUGS (8)
  1. OMNIPAQUE [Suspect]
     Active Substance: IOHEXOL
     Indication: CHEMOTHERAPY
  2. OMNIPAQUE [Suspect]
     Active Substance: IOHEXOL
     Indication: OVARIAN CANCER
     Route: 042
     Dates: start: 20140904, end: 20140904
  3. OMNIPAQUE [Suspect]
     Active Substance: IOHEXOL
     Indication: DIAGNOSTIC PROCEDURE
  4. LIPITOR [Concomitant]
     Active Substance: ATORVASTATIN CALCIUM
     Dates: start: 20131003
  5. TAKEPRON [Concomitant]
     Active Substance: LANSOPRAZOLE
     Dates: start: 20090108
  6. RISPERDAL [Concomitant]
     Active Substance: RISPERIDONE
     Dates: start: 20100325
  7. ROHYPNOL [Concomitant]
     Active Substance: FLUNITRAZEPAM
     Dates: start: 20100325
  8. CELECOX [Concomitant]
     Active Substance: CELECOXIB
     Dates: start: 20100423

REACTIONS (1)
  - Anaphylactic shock [Recovered/Resolved]

NARRATIVE: CASE EVENT DATE: 20140904
